FAERS Safety Report 8079684-5 (Version None)
Quarter: 2012Q1

REPORT INFORMATION
  Report Type: 
  Country: None (occurrence: None)
  Receive Date: 20120128
  Receipt Date: 20110720
  Transmission Date: 20120608
  Serious: No
  Sender: FDA-Public Use
  Company Number: US-ABBOTT-11P-163-0840984-00

PATIENT
  Sex: Female
  Weight: 94.432 kg

DRUGS (25)
  1. HUMIRA [Suspect]
     Route: 058
     Dates: start: 20110629, end: 20110714
  2. CRESTOR [Concomitant]
     Indication: BLOOD CHOLESTEROL INCREASED
     Route: 048
  3. FLONASE [Concomitant]
     Indication: CHRONIC SINUSITIS
  4. ZANTAC [Concomitant]
     Indication: PROPHYLAXIS AGAINST GASTROINTESTINAL ULCER
     Route: 048
  5. COREG [Concomitant]
     Indication: HYPERTENSION
     Route: 048
  6. CLONIDINE [Concomitant]
     Indication: HYPERTENSION
  7. COZAAR [Concomitant]
     Indication: HYPERTENSION
     Route: 048
  8. VITAMIN D [Concomitant]
     Indication: VITAMIN D DEFICIENCY
  9. CALCIUM + VITAMIN D [Concomitant]
     Indication: MINERAL SUPPLEMENTATION
  10. ACETAMINOPHEN [Concomitant]
     Indication: PRODUCT USED FOR UNKNOWN INDICATION
  11. METHOTREXATE [Concomitant]
     Indication: RHEUMATOID ARTHRITIS
     Route: 048
  12. COLACE [Concomitant]
     Indication: PRODUCT USED FOR UNKNOWN INDICATION
  13. LANTUS [Concomitant]
     Indication: DIABETES MELLITUS
     Route: 058
  14. COUMADIN [Concomitant]
     Dosage: 6 MG THREE DAYS A WEEK
     Route: 048
  15. MAGNESIUM OXIDE [Concomitant]
     Indication: MINERAL SUPPLEMENTATION
  16. XANAX [Concomitant]
     Indication: ANXIETY
     Dosage: CUTS TABLET IN HALF
  17. COUMADIN [Concomitant]
     Indication: ANTICOAGULANT THERAPY
     Dosage: 5 MG 4 DAYS A WEEK
     Route: 048
  18. FIBERCON [Concomitant]
     Indication: PRODUCT USED FOR UNKNOWN INDICATION
  19. DIONEX [Concomitant]
     Indication: BLOOD POTASSIUM ABNORMAL
  20. HUMIRA [Suspect]
     Indication: RHEUMATOID ARTHRITIS
     Dosage: 40 MG; 3 INJECTIONS
     Route: 058
     Dates: start: 20110414, end: 20110525
  21. ZOLOFT [Concomitant]
     Indication: DEPRESSION
     Dosage: CUTS 50 IN HALF
     Route: 048
  22. LOVAZA [Concomitant]
     Indication: SUPPLEMENTATION THERAPY
     Route: 048
  23. SYNTHROID [Concomitant]
     Indication: HYPOTHYROIDISM
     Route: 048
  24. ULTRAM [Concomitant]
     Indication: PAIN
     Dosage: 50 MG ONCE A DAY AS NEEDED
     Route: 048
  25. HUMALOG [Concomitant]
     Indication: DIABETES MELLITUS
     Dosage: SLIDING SCALE
     Route: 058

REACTIONS (3)
  - PNEUMONIA [None]
  - PARANASAL SINUS HYPERSECRETION [None]
  - UPPER RESPIRATORY TRACT INFECTION [None]
